FAERS Safety Report 19100603 (Version 1)
Quarter: 2021Q2

REPORT INFORMATION
  Report Type: Spontaneous
  Country: US (occurrence: US)
  Receive Date: 20210407
  Receipt Date: 20210407
  Transmission Date: 20210717
  Serious: No
  Sender: FDA-Public Use
  Company Number: US-JNJFOC-20210350298

PATIENT
  Age: 66 Year
  Sex: Female

DRUGS (8)
  1. COVID?19 VACCINE NOS. [Concomitant]
     Active Substance: COVID-19 VACCINE NOS
     Indication: IMMUNISATION
     Dosage: SECOND DOSE?ANATOMICAL SITE OF INJECTION: LEFT ARM
     Route: 030
     Dates: start: 20210227
  2. BIOTIN GUMMY [Concomitant]
     Indication: PRODUCT USED FOR UNKNOWN INDICATION
     Dosage: ONGOING
     Route: 048
  3. ZYRTEC [Suspect]
     Active Substance: CETIRIZINE HYDROCHLORIDE
     Indication: PROPHYLAXIS
     Dosage: TOOK PRODUCT 1 WEEK PRIOR AND AFTER VACCINATION
     Route: 065
     Dates: start: 202102
  4. MULTIVITAMIN GUMMY BEARS [Concomitant]
     Indication: PRODUCT USED FOR UNKNOWN INDICATION
     Dosage: ONGOING
     Route: 048
  5. PRILOSEC [Concomitant]
     Active Substance: OMEPRAZOLE MAGNESIUM
     Indication: DYSPEPSIA
     Dosage: ONGOING
     Route: 048
  6. COVID?19 VACCINE NOS. [Concomitant]
     Active Substance: COVID-19 VACCINE NOS
     Dosage: FIRST DOSE?ANATOMICAL SITE OF INJECTION: LEFT ARM
     Route: 030
     Dates: start: 20210206
  7. ADVIL [Concomitant]
     Active Substance: IBUPROFEN
     Indication: CYSTITIS INTERSTITIAL
     Dosage: ONGOING
     Route: 048
  8. BUPROPION. [Concomitant]
     Active Substance: BUPROPION
     Indication: DEPRESSION
     Dosage: ONGOING
     Route: 048

REACTIONS (3)
  - Product use in unapproved indication [Unknown]
  - Therapeutic response unexpected [Unknown]
  - Off label use [Unknown]

NARRATIVE: CASE EVENT DATE: 202102
